FAERS Safety Report 8133059-9 (Version None)
Quarter: 2012Q1

REPORT INFORMATION
  Report Type: 
  Country: None (occurrence: None)
  Receive Date: 20120213
  Receipt Date: 20120131
  Transmission Date: 20120608
  Serious: Yes (Hospitalization)
  Sender: FDA-Public Use
  Company Number: PHHY2010GB02865

PATIENT
  Sex: Female

DRUGS (1)
  1. CLOZARIL [Suspect]
     Indication: SCHIZOPHRENIA
     Dosage: 100 MG MORNING AND 200 MG NIGHT
     Dates: start: 20091123, end: 20100201

REACTIONS (13)
  - HISTRIONIC PERSONALITY DISORDER [None]
  - AFFECT LABILITY [None]
  - AFFECTIVE DISORDER [None]
  - NEUTROPENIA [None]
  - MENTAL IMPAIRMENT [None]
  - AGGRESSION [None]
  - NEUTROPHIL COUNT INCREASED [None]
  - WHITE BLOOD CELL COUNT DECREASED [None]
  - AGRANULOCYTOSIS [None]
  - PSYCHOTIC DISORDER [None]
  - INTENTIONAL SELF-INJURY [None]
  - MENTAL DISORDER [None]
  - WHITE BLOOD CELL COUNT INCREASED [None]
